FAERS Safety Report 5692215-X (Version None)
Quarter: 2008Q2

REPORT INFORMATION
  Report Type: 
  Country: None (occurrence: None)
  Receive Date: 20080402
  Receipt Date: 20080325
  Transmission Date: 20081010
  Serious: Yes (Other)
  Sender: FDA-Public Use
  Company Number: GB-BRISTOL-MYERS SQUIBB COMPANY-14132476

PATIENT
  Age: 66 Year
  Sex: Male
  Weight: 80 kg

DRUGS (4)
  1. METFORMIN HCL [Suspect]
     Indication: DIABETES MELLITUS
     Route: 048
     Dates: start: 20070817, end: 20071001
  2. RAMIPRIL [Concomitant]
     Indication: DIABETES MELLITUS
     Route: 048
     Dates: start: 20070716, end: 20070721
  3. SIMVASTATIN [Concomitant]
     Indication: DIABETES MELLITUS
     Route: 048
     Dates: start: 20070716, end: 20070721
  4. TAMSULOSIN HCL [Concomitant]
     Indication: PROSTATISM

REACTIONS (1)
  - GOUT [None]
